FAERS Safety Report 9708874 (Version 1)
Quarter: 2013Q4

REPORT INFORMATION
  Report Type: Spontaneous
  Country: AU (occurrence: None)
  Receive Date: 20131122
  Receipt Date: 20131122
  Transmission Date: 20140711
  Serious: Yes (Other)
  Sender: FDA-Public Use
  Company Number: SYM-2013-12837

PATIENT
  Age: 16 Year
  Sex: Female

DRUGS (3)
  1. FLUOROURACIL [Suspect]
     Indication: LUNG NEOPLASM MALIGNANT
     Dosage: INTRAVENOUS (NOT OTHERWISE SPECIFIED)
     Route: 042
  2. DOCETAXEL (DOCETAXEL) (DOCETAXEL) [Concomitant]
  3. CISPLATIN (CISPLATIN) (CISPLATIN) [Concomitant]

REACTIONS (3)
  - Left ventricular dysfunction [None]
  - Cardiotoxicity [None]
  - Disease progression [None]
